FAERS Safety Report 8826294 (Version 1)
Quarter: 2012Q4

REPORT INFORMATION
  Report Type: 
  Country: US (occurrence: US)
  Receive Date: 20121008
  Receipt Date: 20121008
  Transmission Date: 20130627
  Serious: No
  Sender: FDA-Public Use
  Company Number: US-GLAXOSMITHKLINE-A0987558A

PATIENT
  Age: 33 Year
  Sex: Female

DRUGS (4)
  1. POTIGA [Suspect]
     Indication: CONVULSION
     Dosage: 100MG Three times per day
     Route: 048
     Dates: start: 20120709
  2. VIMPAT [Concomitant]
  3. DILANTIN [Concomitant]
  4. ZONEGRAN [Concomitant]

REACTIONS (3)
  - Somnolence [Recovering/Resolving]
  - Fatigue [Unknown]
  - Fatigue [Unknown]
